FAERS Safety Report 7309635-X (Version None)
Quarter: 2011Q1

REPORT INFORMATION
  Report Type: 
  Country: None (occurrence: None)
  Receive Date: 20110223
  Receipt Date: 20110119
  Transmission Date: 20110831
  Serious: Yes (Other)
  Sender: FDA-Public Use
  Company Number: FR-BAYER-201043535GPV

PATIENT
  Sex: Male
  Weight: 85 kg

DRUGS (3)
  1. MICARDIS [Concomitant]
     Indication: HYPERTENSION
     Dosage: 1 DF, QD
     Route: 048
  2. LEVITRA [Suspect]
     Indication: PRODUCT USED FOR UNKNOWN INDICATION
     Dosage: UNK
     Route: 048
     Dates: start: 20100301
  3. CIALIS [Concomitant]
     Dosage: UNK
     Dates: start: 20090301

REACTIONS (1)
  - EYE IRRITATION [None]
